FAERS Safety Report 6776324-X (Version None)
Quarter: 2010Q2

REPORT INFORMATION
  Report Type: 
  Country: None (occurrence: None)
  Receive Date: 20100615
  Receipt Date: 20100531
  Transmission Date: 20101027
  Serious: Yes (Other)
  Sender: FDA-Public Use
  Company Number: 013289

PATIENT
  Age: 10 Year
  Sex: Female

DRUGS (1)
  1. LEVETIRACETAM [Suspect]
     Indication: EPILEPSY
     Dosage: TITRATED FROM 10 TO 30 MG/KG, 40 MG/KG, REDUCED TO 15 MG/KG-1 FROM 40 MG/KG, INITIAL DOSE 5MG/KG TWI

REACTIONS (4)
  - CONDITION AGGRAVATED [None]
  - GRAND MAL CONVULSION [None]
  - STATUS EPILEPTICUS [None]
  - TONIC CONVULSION [None]
